FAERS Safety Report 22135067 (Version 1)
Quarter: 2023Q1

REPORT INFORMATION
  Report Type: Spontaneous
  Country: US (occurrence: None)
  Receive Date: 20230323
  Receipt Date: 20230323
  Transmission Date: 20230418
  Serious: No
  Sender: FDA-Public Use
  Company Number: None

PATIENT
  Age: 44 Year
  Sex: Female
  Weight: 76.95 kg

DRUGS (15)
  1. AJOVY [Suspect]
     Active Substance: FREMANEZUMAB-VFRM
     Indication: Migraine
     Dosage: OTHER QUANTITY : 1 INJECTION(S);?OTHER FREQUENCY : 30 DAYS;?
     Route: 058
     Dates: start: 20221220, end: 20230323
  2. JAIMIESS [Concomitant]
     Active Substance: ETHINYL ESTRADIOL\LEVONORGESTREL
  3. MONTELUKAST [Concomitant]
     Active Substance: MONTELUKAST SODIUM
  4. ALBUTEROL [Concomitant]
     Active Substance: ALBUTEROL
  5. TRELEGY ELLIPTA [Concomitant]
     Active Substance: FLUTICASONE FUROATE\UMECLIDINIUM BROMIDE\VILANTEROL TRIFENATATE
  6. SUMATRIPTAN [Concomitant]
     Active Substance: SUMATRIPTAN
  7. AMITRIPTYLINE [Concomitant]
     Active Substance: AMITRIPTYLINE
  8. SERTRALINE [Concomitant]
     Active Substance: SERTRALINE HYDROCHLORIDE
  9. BUPROPION [Concomitant]
     Active Substance: BUPROPION
  10. OMEPRAZOLE [Concomitant]
     Active Substance: OMEPRAZOLE
  11. AJOVY [Concomitant]
     Active Substance: FREMANEZUMAB-VFRM
  12. womens multivitamin [Concomitant]
  13. HERBALS\TURMERIC [Concomitant]
     Active Substance: HERBALS\TURMERIC
  14. VITAMIN C [Concomitant]
     Active Substance: ASCORBIC ACID
  15. FERROUS SULFATE [Concomitant]
     Active Substance: FERROUS SULFATE

REACTIONS (3)
  - Injection site erythema [None]
  - Injection site swelling [None]
  - Injection site pruritus [None]

NARRATIVE: CASE EVENT DATE: 20230323
